FAERS Safety Report 21707118 (Version 3)
Quarter: 2025Q1

REPORT INFORMATION
  Report Type: Spontaneous
  Country: US (occurrence: US)
  Receive Date: 20221209
  Receipt Date: 20250318
  Transmission Date: 20250409
  Serious: Yes (Other)
  Sender: PFIZER
  Company Number: US-PFIZER INC-PV202200120367

PATIENT
  Age: 84 Year
  Sex: Male

DRUGS (1)
  1. XELJANZ XR [Suspect]
     Active Substance: TOFACITINIB CITRATE
     Indication: Rheumatoid arthritis
     Dosage: 11 MG, DAILY

REACTIONS (11)
  - Pneumonia [Recovered/Resolved]
  - Haematochezia [Unknown]
  - Balance disorder [Unknown]
  - Arthralgia [Unknown]
  - Fatigue [Unknown]
  - Dyspnoea [Unknown]
  - Weight decreased [Unknown]
  - Productive cough [Unknown]
  - Nasal congestion [Unknown]
  - Pain in extremity [Unknown]
  - Condition aggravated [Unknown]

NARRATIVE: CASE EVENT DATE: 20220101
